FAERS Safety Report 15229488 (Version 1)
Quarter: 2018Q3

REPORT INFORMATION
  Report Type: Spontaneous
  Country: RU (occurrence: RU)
  Receive Date: 20180802
  Receipt Date: 20180802
  Transmission Date: 20181010
  Serious: Yes (Death)
  Sender: FDA-Public Use
  Company Number: RU-ROCHE-2162895

PATIENT
  Age: 62 Year
  Sex: Male

DRUGS (2)
  1. LEUKERAN [Concomitant]
     Active Substance: CHLORAMBUCIL
     Indication: CHRONIC LYMPHOCYTIC LEUKAEMIA
     Dosage: 12 MG/ 4X900 MG / 700 MG
     Route: 048
  2. MABTHERA [Suspect]
     Active Substance: RITUXIMAB
     Indication: CHRONIC LYMPHOCYTIC LEUKAEMIA
     Dosage: 12 MG/ 4X900 MG / 700 MG
     Route: 042

REACTIONS (4)
  - Cerebrovascular accident [Fatal]
  - Bronchitis [Fatal]
  - Viral infection [Fatal]
  - Pneumonia bacterial [Fatal]
